FAERS Safety Report 14901063 (Version 1)
Quarter: 2018Q2

REPORT INFORMATION
  Report Type: Spontaneous
  Country: US (occurrence: US)
  Receive Date: 20180516
  Receipt Date: 20180516
  Transmission Date: 20180711
  Serious: No
  Sender: FDA-Public Use
  Company Number: US-AMGEN-USASP2018062983

PATIENT
  Age: 56 Year
  Sex: Female

DRUGS (4)
  1. VICTOZA [Concomitant]
     Active Substance: LIRAGLUTIDE
     Dosage: UNK
  2. PREDNISONE. [Concomitant]
     Active Substance: PREDNISONE
     Dosage: 5 MG, UNK
  3. ENBREL [Suspect]
     Active Substance: ETANERCEPT
     Indication: RHEUMATOID ARTHRITIS
     Dosage: 50 MG, QWK
     Route: 065
     Dates: start: 20170515, end: 2017
  4. ENBREL [Suspect]
     Active Substance: ETANERCEPT
     Dosage: 50 MG, QWK
     Route: 065
     Dates: start: 2017

REACTIONS (11)
  - Sleep disorder due to general medical condition, insomnia type [Unknown]
  - Dyspepsia [Unknown]
  - Incorrect dose administered by device [Unknown]
  - Loss of personal independence in daily activities [Unknown]
  - Influenza [Unknown]
  - Laboratory test abnormal [Unknown]
  - Accidental exposure to product [Unknown]
  - Oropharyngeal pain [Unknown]
  - Hot flush [Unknown]
  - Injection site bruising [Unknown]
  - Tendon pain [Unknown]

NARRATIVE: CASE EVENT DATE: 2017
